FAERS Safety Report 17354813 (Version 1)
Quarter: 2020Q1

REPORT INFORMATION
  Report Type: Spontaneous
  Country: SI (occurrence: SI)
  Receive Date: 20200131
  Receipt Date: 20200131
  Transmission Date: 20200409
  Serious: Yes (Hospitalization, Other)
  Sender: FDA-Public Use
  Company Number: NVSC2020SI021842

PATIENT
  Age: 16 Year
  Sex: Female

DRUGS (1)
  1. LEKADOL [Suspect]
     Active Substance: ACETAMINOPHEN
     Indication: PRODUCT USED FOR UNKNOWN INDICATION
     Dosage: 45 DF
     Route: 048

REACTIONS (8)
  - Acute hepatic failure [Not Recovered/Not Resolved]
  - Jaundice [Unknown]
  - Vomiting [Unknown]
  - Malaise [Unknown]
  - Transaminases increased [Recovering/Resolving]
  - Intentional overdose [Unknown]
  - Hepatic encephalopathy [Unknown]
  - Coagulation time prolonged [Unknown]
